FAERS Safety Report 20318589 (Version 1)
Quarter: 2022Q1

REPORT INFORMATION
  Report Type: Spontaneous
  Country: DE (occurrence: DE)
  Receive Date: 20220110
  Receipt Date: 20220110
  Transmission Date: 20220424
  Serious: Yes (Hospitalization)
  Sender: FDA-Public Use
  Company Number: DE-NOVARTISPH-NVSC2022DE001852

PATIENT
  Age: 19 Year
  Sex: Male
  Weight: 93 kg

DRUGS (2)
  1. PREDNISOLONE [Suspect]
     Active Substance: PREDNISOLONE
     Indication: Tubulointerstitial nephritis and uveitis syndrome
     Dosage: 1 MG/KG, QD
     Route: 048
  2. PREDNISOLONE [Suspect]
     Active Substance: PREDNISOLONE
     Dosage: 10 MG, QD (DOSE REDUCTION EVERY 7 DAYS THEREAFTER)
     Route: 048

REACTIONS (2)
  - Device related infection [Recovering/Resolving]
  - Product use in unapproved indication [Unknown]
